FAERS Safety Report 6014788-X (Version None)
Quarter: 2008Q4

REPORT INFORMATION
  Report Type: 
  Country: None (occurrence: None)
  Receive Date: 20081219
  Receipt Date: 20081212
  Transmission Date: 20090506
  Serious: Yes (Other)
  Sender: FDA-Public Use
  Company Number: PHHY2008CH31743

PATIENT
  Age: 76 Year
  Sex: Female

DRUGS (7)
  1. AREDIA [Suspect]
     Indication: OSTEOPOROSIS
     Dosage: UNK
     Route: 042
     Dates: start: 20030101, end: 20080801
  2. REMICADE [Concomitant]
     Dosage: UNK
  3. TEGRETOL [Concomitant]
     Dosage: UNK
  4. PHENYTOIN [Concomitant]
     Dosage: UNK
  5. CORDARONE [Concomitant]
     Dosage: UNK
  6. INHIBACE [Concomitant]
     Dosage: UNK
  7. STEROIDS NOS [Concomitant]
     Dosage: UNK
     Route: 048
     Dates: start: 20060701, end: 20070601

REACTIONS (5)
  - DENTAL OPERATION [None]
  - GINGIVAL SWELLING [None]
  - OSTEONECROSIS [None]
  - PAIN IN JAW [None]
  - TOOTH EXTRACTION [None]
